FAERS Safety Report 7649396-8 (Version None)
Quarter: 2011Q3

REPORT INFORMATION
  Report Type: 
  Country: None (occurrence: None)
  Receive Date: 20110802
  Receipt Date: 20110721
  Transmission Date: 20111222
  Serious: Yes (Hospitalization)
  Sender: FDA-Public Use
  Company Number: US-JNJFOC-20110709407

PATIENT
  Age: 25 Year
  Sex: Male

DRUGS (2)
  1. STELARA [Suspect]
     Route: 058
     Dates: start: 20110501
  2. STELARA [Suspect]
     Indication: PSORIASIS
     Route: 058
     Dates: start: 20110603

REACTIONS (5)
  - GAIT DISTURBANCE [None]
  - BALANCE DISORDER [None]
  - MEMORY IMPAIRMENT [None]
  - CONFUSIONAL STATE [None]
  - MUSCULAR WEAKNESS [None]
